FAERS Safety Report 8494500-5 (Version None)
Quarter: 2012Q3

REPORT INFORMATION
  Report Type: 
  Country: None (occurrence: None)
  Receive Date: 20120709
  Receipt Date: 20110713
  Transmission Date: 20120928
  Serious: No
  Sender: FDA-Public Use
  Company Number: US-COVIDIEN/TYCO HEALTHCARE/MALLINCKRODT-T201101424

PATIENT
  Sex: Female

DRUGS (2)
  1. OXYCODONE/ACETAMINOPHEN [Suspect]
     Dosage: 7.5/325 BID
     Route: 048
     Dates: start: 20110630
  2. OXYCODONE/ACETAMINOPHEN [Concomitant]
     Dosage: 1.5 TABLETS AT A TIME

REACTIONS (2)
  - IMPAIRED DRIVING ABILITY [None]
  - FEELING ABNORMAL [None]
